APPROVED DRUG PRODUCT: ESTRADIOL
Active Ingredient: ESTRADIOL
Strength: 0.01MG
Dosage Form/Route: INSERT;VAGINAL
Application: A214137 | Product #002 | TE Code: AB
Applicant: TEVA PHARMACEUTICALS USA INC
Approved: Dec 8, 2025 | RLD: No | RS: No | Type: RX